FAERS Safety Report 5702932-0 (Version None)
Quarter: 2008Q2

REPORT INFORMATION
  Report Type: 
  Country: None (occurrence: None)
  Receive Date: 20080408
  Receipt Date: 20080325
  Transmission Date: 20081010
  Serious: Yes (Hospitalization)
  Sender: FDA-Public Use
  Company Number: 163547

PATIENT
  Age: 44 Year
  Sex: Female
  Weight: 69.8539 kg

DRUGS (8)
  1. AVONEX [Suspect]
     Indication: MULTIPLE SCLEROSIS
     Dosage: 30 UG; QW; IM
     Route: 030
     Dates: end: 20071201
  2. PREVACID [Concomitant]
  3. WELLBUTRIN [Concomitant]
  4. WELLBUTRIN [Concomitant]
  5. VITAMINS [Concomitant]
  6. COPAXONE [Concomitant]
  7. DEPAKOTE [Concomitant]
  8. ZYPREXA [Concomitant]

REACTIONS (6)
  - BACK PAIN [None]
  - BREAST CANCER IN SITU [None]
  - GASTROOESOPHAGEAL REFLUX DISEASE [None]
  - INSOMNIA [None]
  - MITRAL VALVE INCOMPETENCE [None]
  - MULTIPLE SCLEROSIS [None]
